FAERS Safety Report 8322901-4 (Version None)
Quarter: 2012Q2

REPORT INFORMATION
  Report Type: 
  Country: None (occurrence: None)
  Receive Date: 20120430
  Receipt Date: 20120427
  Transmission Date: 20120825
  Serious: Yes (Other)
  Sender: FDA-Public Use
  Company Number: US-PFIZER INC-2012105336

PATIENT
  Sex: Male
  Weight: 104.31 kg

DRUGS (3)
  1. CHANTIX [Suspect]
     Dosage: UNK
     Route: 048
     Dates: start: 20120326
  2. CHANTIX [Suspect]
     Dosage: UNK
     Route: 048
  3. CHANTIX [Suspect]
     Indication: SMOKING CESSATION THERAPY
     Dosage: 0.5 MG, 1X/DAY
     Route: 048
     Dates: start: 20110401

REACTIONS (3)
  - IRRITABILITY [None]
  - DRUG LEVEL CHANGED [None]
  - WEIGHT INCREASED [None]
